FAERS Safety Report 4965243-7 (Version None)
Quarter: 2006Q1

REPORT INFORMATION
  Report Type: 
  Country: None (occurrence: None)
  Receive Date: 20060130
  Receipt Date: 20050621
  Transmission Date: 20060701
  Serious: No
  Sender: FDA-Public Use
  Company Number: COT_0272_2005

PATIENT
  Age: 57 Year
  Sex: Female
  Weight: 82.5547 kg

DRUGS (13)
  1. VENTAVIS [Suspect]
     Indication: PULMONARY HYPERTENSION
     Dosage: 5 MCG 6TO9X/DAY IH
     Route: 055
     Dates: start: 20050517, end: 20050808
  2. VENTAVIS [Suspect]
     Indication: PULMONARY HYPERTENSION
     Dosage: 5 MCG 6TO9X/DAY IH
     Route: 055
     Dates: start: 20050517, end: 20050808
  3. VENTAVIS [Suspect]
     Indication: PULMONARY HYPERTENSION
     Dosage: 2.5 MCG 6XD IH
     Route: 055
     Dates: start: 20050808
  4. VENTAVIS [Suspect]
     Indication: PULMONARY HYPERTENSION
     Dosage: 2.5 MCG ONCE IH
     Route: 055
     Dates: start: 20050517, end: 20050517
  5. ALLOPURINOL [Concomitant]
  6. BUMETANIDINE [Concomitant]
  7. ATACAND [Concomitant]
  8. WARFARIN SODIUM [Concomitant]
  9. INSULIN ISOPHANE [Concomitant]
  10. FISH OIL [Concomitant]
  11. POTASSIUM CHLORIDE [Concomitant]
  12. VENTAVIS [Suspect]
     Indication: PULMONARY HYPERTENSION
     Dosage: 5 MCG 6TO9X/DAY IH
     Route: 055
     Dates: start: 20050517, end: 20050808
  13. VENTAVIS [Suspect]
     Indication: PULMONARY HYPERTENSION
     Dosage: 2.5 MCG6XD IH
     Route: 055
     Dates: start: 20050808

REACTIONS (4)
  - ANAEMIA [None]
  - BLOOD PRESSURE DECREASED [None]
  - COUGH [None]
  - FATIGUE [None]
